FAERS Safety Report 6876391-9 (Version None)
Quarter: 2010Q3

REPORT INFORMATION
  Report Type: 
  Country: None (occurrence: None)
  Receive Date: 20100727
  Receipt Date: 20070615
  Transmission Date: 20110219
  Serious: Yes (Life-Threatening, Other)
  Sender: FDA-Public Use
  Company Number: US-PFIZER INC-2007034475

PATIENT
  Sex: Female

DRUGS (1)
  1. CELEBREX [Suspect]
     Indication: OSTEOARTHRITIS
     Route: 048
     Dates: start: 20070403, end: 20070416

REACTIONS (5)
  - DYSPNOEA [None]
  - LIP SWELLING [None]
  - PRURITUS [None]
  - RASH [None]
  - SWELLING [None]
